FAERS Safety Report 25932303 (Version 2)
Quarter: 2025Q4

REPORT INFORMATION
  Report Type: Spontaneous
  Country: JP (occurrence: JP)
  Receive Date: 20251016
  Receipt Date: 20251022
  Transmission Date: 20260117
  Serious: Yes (Other)
  Sender: NOVARTIS
  Company Number: JP-002147023-NVSJ2025JP010070

PATIENT
  Age: 6 Decade
  Sex: Male

DRUGS (1)
  1. ENTRESTO [Suspect]
     Active Substance: SACUBITRIL\VALSARTAN
     Indication: Hypertension
     Dosage: 200 MG, QD
     Route: 048
     Dates: start: 202508

REACTIONS (6)
  - Cardiac dysfunction [Unknown]
  - Dilated cardiomyopathy [Unknown]
  - Oxygen saturation decreased [Unknown]
  - Dyspnoea exertional [Recovered/Resolved]
  - Chest discomfort [Unknown]
  - Diarrhoea [Recovered/Resolved]

NARRATIVE: CASE EVENT DATE: 20250901
